FAERS Safety Report 15435230 (Version 1)
Quarter: 2018Q4

REPORT INFORMATION
  Report Type: Spontaneous
  Country: US (occurrence: US)
  Receive Date: 20180927
  Receipt Date: 20180927
  Transmission Date: 20190204
  Serious: No
  Sender: FDA-Public Use
  Company Number: US-INDIVIOR LIMITED-INDV-112393-2018

PATIENT
  Age: 22 Year
  Sex: Male

DRUGS (7)
  1. SUBOXONE [Suspect]
     Active Substance: BUPRENORPHINE HYDROCHLORIDE\NALOXONE HYDROCHLORIDE
     Dosage: 16 MG PER DAY
     Route: 065
     Dates: start: 2017
  2. SUBOXONE [Suspect]
     Active Substance: BUPRENORPHINE HYDROCHLORIDE\NALOXONE HYDROCHLORIDE
     Dosage: 8 MG PER DAY
     Route: 065
     Dates: start: 201804, end: 2018
  3. SUBLOCADE [Suspect]
     Active Substance: BUPRENORPHINE
     Indication: DRUG USE DISORDER
     Dosage: 300 MG QMO
     Route: 058
     Dates: start: 20180627
  4. ADDERALL [Suspect]
     Active Substance: AMPHETAMINE ASPARTATE\AMPHETAMINE SULFATE\DEXTROAMPHETAMINE SACCHARATE\DEXTROAMPHETAMINE SULFATE
     Indication: PRODUCT USED FOR UNKNOWN INDICATION
     Dosage: 37 MG, PER DAY
     Route: 065
     Dates: end: 20180629
  5. SUBOXONE [Suspect]
     Active Substance: BUPRENORPHINE HYDROCHLORIDE\NALOXONE HYDROCHLORIDE
     Indication: PRODUCT USED FOR UNKNOWN INDICATION
     Dosage: 12 MG, PER DAY
     Route: 065
     Dates: start: 2017, end: 2017
  6. SUBOXONE [Suspect]
     Active Substance: BUPRENORPHINE HYDROCHLORIDE\NALOXONE HYDROCHLORIDE
     Dosage: 12 MG PER DAY
     Route: 065
     Dates: start: 201801, end: 2018
  7. SUBOXONE [Suspect]
     Active Substance: BUPRENORPHINE HYDROCHLORIDE\NALOXONE HYDROCHLORIDE
     Dosage: 4 MG TO 6 MG OR 8 MG (STRUGGLED TO TAKE LOWER DOSE)
     Route: 065
     Dates: start: 2018

REACTIONS (5)
  - Intentional product use issue [Recovered/Resolved]
  - Aggression [Recovered/Resolved]
  - Irritability [Recovered/Resolved]
  - Intentional underdose [Recovered/Resolved]
  - Somnolence [Recovered/Resolved]

NARRATIVE: CASE EVENT DATE: 2018
